FAERS Safety Report 7532433-9 (Version None)
Quarter: 2011Q2

REPORT INFORMATION
  Report Type: 
  Country: None (occurrence: None)
  Receive Date: 20110608
  Receipt Date: 20110603
  Transmission Date: 20111010
  Serious: Yes (Other)
  Sender: FDA-Public Use
  Company Number: CA-PFIZER INC-2011121008

PATIENT
  Sex: Female

DRUGS (2)
  1. ELAVIL [Suspect]
     Dosage: 25
  2. LYRICA [Suspect]
     Dosage: 150, TWICE DAILY

REACTIONS (1)
  - RETINAL DISORDER [None]
